FAERS Safety Report 8757757 (Version 2)
Quarter: 2012Q4

REPORT INFORMATION
  Report Type: 
  Country: US (occurrence: US)
  Receive Date: 20120828
  Receipt Date: 20120905
  Transmission Date: 20130627
  Serious: Yes (Other)
  Sender: FDA-Public Use
  Company Number: US-ALEXION PHARMACEUTICALS INC.-A201201578

PATIENT
  Age: 77 Year
  Sex: Male

DRUGS (10)
  1. SOLIRIS 300MG [Suspect]
     Indication: PAROXYSMAL NOCTURNAL HAEMOGLOBINURIA
     Dosage: 600 mg, qw
     Route: 042
     Dates: start: 200811
  2. SOLIRIS 300MG [Suspect]
     Dosage: 900 mg, q2w
     Route: 042
  3. SOLIRIS 300MG [Suspect]
     Dosage: 900 mg, q3w
     Route: 042
  4. CENTRUM SILVER [Concomitant]
     Dosage: 1 DF, qd
     Route: 048
  5. TESTOSTERONE [Concomitant]
     Indication: BLOOD TESTOSTERONE DECREASED
     Dosage: qw, injection
  6. VIAGRA [Concomitant]
     Dosage: prn
     Route: 048
  7. PROPANOLOL [Concomitant]
     Indication: HYPERTENSION
     Dosage: 600 mg, qd
     Route: 048
  8. LIVALO [Concomitant]
     Indication: BLOOD CHOLESTEROL
     Dosage: 2 mg, qd
     Route: 048
  9. FOLIC ACID [Concomitant]
     Indication: PAROXYSMAL NOCTURNAL HAEMOGLOBINURIA
     Dosage: 1 mg, qd
     Route: 048
  10. ASPIRIN [Concomitant]
     Indication: PROPHYLAXIS
     Dosage: 81 mg, qd
     Route: 048

REACTIONS (2)
  - Device related infection [Recovering/Resolving]
  - Staphylococcal bacteraemia [Recovering/Resolving]
